FAERS Safety Report 11030762 (Version 4)
Quarter: 2015Q3

REPORT INFORMATION
  Report Type: Report from Study
  Country: US (occurrence: US)
  Receive Date: 20150415
  Receipt Date: 20150830
  Transmission Date: 20151125
  Serious: No
  Sender: FDA-Public Use
  Company Number: US-AMGEN-USASL2015035712

PATIENT
  Age: 60 Year
  Sex: Female

DRUGS (1)
  1. ENBREL [Suspect]
     Active Substance: ETANERCEPT
     Indication: PSORIASIS
     Dosage: 50 MG, UNK (MONTHLY)
     Route: 065
     Dates: start: 20061101

REACTIONS (3)
  - No therapeutic response [Not Recovered/Not Resolved]
  - Psoriasis [Unknown]
  - Inappropriate schedule of drug administration [Unknown]
